FAERS Safety Report 9321265 (Version 1)
Quarter: 2013Q2

REPORT INFORMATION
  Report Type: Spontaneous
  Country: DE (occurrence: None)
  Receive Date: 20130528
  Receipt Date: 20130528
  Transmission Date: 20140414
  Serious: Yes (Other)
  Sender: FDA-Public Use
  Company Number: GER/GER/13/0029589

PATIENT
  Age: 72 Year
  Sex: Female

DRUGS (7)
  1. CIPROBETA [Suspect]
     Indication: CYSTITIS
     Dosage: 1 IN 1 D
     Route: 048
  2. AMITRIPTYLINE (AMITRIPTYLINE HYDROCHLORIDE) [Concomitant]
  3. PANTOPRAZOLE (PANTOPRAZOLE SODIUM SESQUIHYDRATE) [Concomitant]
  4. CALCIUM  D3(LEKOVIT CA) [Concomitant]
  5. LYRICA (PREGABALIN) [Concomitant]
  6. HALDOL (HALOPERIDOL) [Concomitant]
  7. RIVOTRIL (CLONAZEPAM) [Concomitant]

REACTIONS (6)
  - Dementia [None]
  - Condition aggravated [None]
  - Hallucination [None]
  - Confusional state [None]
  - Chills [None]
  - Nightmare [None]
